FAERS Safety Report 6608828-4 (Version None)
Quarter: 2010Q1

REPORT INFORMATION
  Report Type: 
  Country: None (occurrence: None)
  Receive Date: 20100301
  Receipt Date: 20100219
  Transmission Date: 20100710
  Serious: Yes (Other)
  Sender: FDA-Public Use
  Company Number: US-ABBOTT-10P-163-0627977-00

PATIENT
  Sex: Female
  Weight: 49.94 kg

DRUGS (6)
  1. SYNTHROID [Suspect]
     Indication: HYPOTHYROIDISM
     Route: 048
     Dates: start: 20050101
  2. SYNTHROID [Suspect]
     Route: 048
     Dates: start: 20060101
  3. SYNTHROID [Suspect]
     Route: 048
     Dates: end: 20060101
  4. CYTOMEL [Concomitant]
     Indication: HYPOTHYROIDISM
     Route: 048
  5. VITAMINS [Concomitant]
     Indication: VITAMIN SUPPLEMENTATION
  6. FLAXSEED OIL [Concomitant]
     Indication: MEDICAL DIET

REACTIONS (6)
  - BACK PAIN [None]
  - GAIT DISTURBANCE [None]
  - LYMPHADENOPATHY [None]
  - NODULE [None]
  - NUCLEAR MAGNETIC RESONANCE IMAGING ABNORMAL [None]
  - THYROID CANCER [None]
